FAERS Safety Report 19440870 (Version 1)
Quarter: 2021Q2

REPORT INFORMATION
  Report Type: Spontaneous
  Country: US (occurrence: US)
  Receive Date: 20210621
  Receipt Date: 20210621
  Transmission Date: 20210717
  Serious: No
  Sender: FDA-Public Use
  Company Number: US-GLAXOSMITHKLINE-USCH2021036471

PATIENT

DRUGS (6)
  1. EXCEDRIN EXTRA STRENGTH [Suspect]
     Active Substance: ACETAMINOPHEN\ASPIRIN\CAFFEINE
     Indication: MIGRAINE
  2. MIDOL [Suspect]
     Active Substance: IBUPROFEN
     Indication: MIGRAINE
     Dosage: 4 DF, QD
  3. EXCEDRIN EXTRA STRENGTH [Suspect]
     Active Substance: ACETAMINOPHEN\ASPIRIN\CAFFEINE
     Indication: DYSMENORRHOEA
     Dosage: UNK,MAXIMUM 8 CAPLETS IN 24 HOURS
  4. IBUPROFEN. [Suspect]
     Active Substance: IBUPROFEN
     Indication: DYSMENORRHOEA
     Dosage: 2 DF, QD
  5. IBUPROFEN. [Suspect]
     Active Substance: IBUPROFEN
     Indication: HEADACHE
  6. MIDOL [Suspect]
     Active Substance: IBUPROFEN
     Indication: DYSMENORRHOEA

REACTIONS (3)
  - Product use in unapproved indication [Unknown]
  - Drug effective for unapproved indication [Unknown]
  - Drug effect less than expected [Unknown]
